FAERS Safety Report 7405433-7 (Version None)
Quarter: 2011Q2

REPORT INFORMATION
  Report Type: 
  Country: None (occurrence: None)
  Receive Date: 20110411
  Receipt Date: 20110401
  Transmission Date: 20111010
  Serious: Yes (Hospitalization)
  Sender: FDA-Public Use
  Company Number: BR-US-EMD SERONO, INC.-7049434

PATIENT
  Sex: Female

DRUGS (4)
  1. PRIMERA [Concomitant]
  2. FLUOXETINE [Concomitant]
  3. REBIF [Suspect]
     Indication: RELAPSING-REMITTING MULTIPLE SCLEROSIS
     Dates: start: 20090801
  4. RETEMIC [Concomitant]

REACTIONS (2)
  - HYDROCEPHALUS [None]
  - AMNESIA [None]
